FAERS Safety Report 8592508-2 (Version None)
Quarter: 2012Q3

REPORT INFORMATION
  Report Type: 
  Country: None (occurrence: None)
  Receive Date: 20120814
  Receipt Date: 20120810
  Transmission Date: 20120928
  Serious: Yes (Other)
  Sender: FDA-Public Use
  Company Number: PHHY2012FR069761

PATIENT
  Age: 65 Year
  Sex: Male

DRUGS (3)
  1. ACETAMINOPHEN [Concomitant]
     Indication: ARTHRALGIA
  2. VOLTAREN [Suspect]
     Indication: ARTHRALGIA
     Dosage: 1 DF, BID (TWICE DAILY)
     Dates: start: 20120809, end: 20120809
  3. INSULIN [Concomitant]
     Indication: TYPE 1 DIABETES MELLITUS

REACTIONS (4)
  - HYPOGLYCAEMIA [None]
  - SKIN REACTION [None]
  - BLISTER [None]
  - MALAISE [None]
